FAERS Safety Report 5719739-0 (Version None)
Quarter: 2008Q2

REPORT INFORMATION
  Report Type: 
  Country: None (occurrence: None)
  Receive Date: 20080428
  Receipt Date: 20080417
  Transmission Date: 20081010
  Serious: Yes (Hospitalization)
  Sender: FDA-Public Use
  Company Number: PHRM2008FR01319

PATIENT
  Age: 95 Year
  Sex: Female

DRUGS (14)
  1. ACTISKENAN [Concomitant]
     Indication: SPINAL COMPRESSION FRACTURE
     Dosage: 5 MG, ONCE/SINGLE
     Route: 048
     Dates: start: 20070329, end: 20070329
  2. ACTISKENAN [Concomitant]
     Dosage: 5 MG, QD
     Route: 048
     Dates: start: 20070324, end: 20070325
  3. SKENAN [Concomitant]
     Indication: SPINAL COMPRESSION FRACTURE
     Dosage: 10 MG, QD
     Route: 048
     Dates: start: 20070326, end: 20070326
  4. SKENAN [Concomitant]
     Dosage: 20 MG/DAY
     Route: 048
     Dates: start: 20070327, end: 20070328
  5. NITRODERM [Suspect]
     Indication: ISCHAEMIC CARDIOMYOPATHY
     Dosage: 10 MG/24 HOURS
     Route: 062
     Dates: end: 20070322
  6. NITRODERM [Suspect]
     Dosage: 20 MG/24 HOURS
     Route: 062
     Dates: start: 20070323, end: 20070329
  7. PERSANTINE [Concomitant]
     Dosage: 225 MG, QD
     Route: 048
  8. DAFALGAN [Concomitant]
  9. RISPERDAL [Suspect]
     Indication: CONFUSIONAL STATE
     Dosage: 0.5 MG, QD
     Route: 048
     Dates: start: 20070323, end: 20070328
  10. OXAZEPAM [Suspect]
     Indication: SLEEP DISORDER
     Dosage: 10 MG, QD
     Route: 048
     Dates: start: 20070323, end: 20070329
  11. CARDENSIEL [Suspect]
     Indication: HYPERTENSION
     Route: 048
     Dates: end: 20070328
  12. ESIDRIX [Suspect]
     Indication: HYPERTENSION
     Dosage: 25 MG, QD
     Route: 048
     Dates: start: 20070324
  13. IRBESARTAN [Suspect]
     Indication: HYPERTENSION
     Dosage: 300 MG, QD
     Route: 048
  14. ADANCOR [Suspect]
     Indication: ISCHAEMIC CARDIOMYOPATHY
     Dosage: 40 MG, QD
     Route: 048

REACTIONS (21)
  - ABDOMINAL PAIN [None]
  - ARRHYTHMIA [None]
  - ATRIOVENTRICULAR BLOCK FIRST DEGREE [None]
  - BACK PAIN [None]
  - C-REACTIVE PROTEIN INCREASED [None]
  - CONSTIPATION [None]
  - ERYSIPELAS [None]
  - FEELING COLD [None]
  - FLATULENCE [None]
  - FLUID REPLACEMENT [None]
  - HALLUCINATION [None]
  - HEAT THERAPY [None]
  - HYPOTHERMIA [None]
  - INCREASED BRONCHIAL SECRETION [None]
  - LOCKED-IN SYNDROME [None]
  - OSTEOPOROTIC FRACTURE [None]
  - SIGMOIDITIS [None]
  - SINUS BRADYCARDIA [None]
  - SOMNOLENCE [None]
  - SPINAL COMPRESSION FRACTURE [None]
  - VOMITING [None]
